FAERS Safety Report 8502932-1 (Version None)
Quarter: 2012Q3

REPORT INFORMATION
  Report Type: 
  Country: None (occurrence: None)
  Receive Date: 20120711
  Receipt Date: 20120706
  Transmission Date: 20120928
  Serious: Yes (Hospitalization)
  Sender: FDA-Public Use
  Company Number: US-PFIZER INC-2012143317

PATIENT
  Sex: Female

DRUGS (1)
  1. SUTENT [Suspect]
     Indication: METASTATIC RENAL CELL CARCINOMA
     Dosage: 50 MG, 1 CAPS DAILY
     Route: 048
     Dates: start: 20120504, end: 20120530

REACTIONS (2)
  - FLUID RETENTION [None]
  - CARDIAC FAILURE CONGESTIVE [None]
